FAERS Safety Report 16303596 (Version 1)
Quarter: 2019Q2

REPORT INFORMATION
  Report Type: Spontaneous
  Country: US (occurrence: US)
  Receive Date: 20190405
  Receipt Date: 20190405
  Transmission Date: 20190711
  Serious: No
  Sender: FDA-Public Use
  Company Number: None

PATIENT
  Sex: Female
  Weight: 71.67 kg

DRUGS (10)
  1. MULTI VITAMIN [Concomitant]
     Active Substance: VITAMINS
  2. DOXAZOSIN [Suspect]
     Active Substance: DOXAZOSIN\DOXAZOSIN MESYLATE
  3. VITAMIN C [Concomitant]
     Active Substance: ASCORBIC ACID
  4. MAGNESIUM [Concomitant]
     Active Substance: MAGNESIUM
  5. FLAXSEED [Concomitant]
     Active Substance: FLAX SEED
  6. VERAPAMIL ER [Suspect]
     Active Substance: VERAPAMIL HYDROCHLORIDE
     Indication: HYPERTENSION
     Dosage: ?          QUANTITY:1 DF DOSAGE FORM;OTHER FREQUENCY:EVERY AM;?
     Route: 048
     Dates: start: 20141201, end: 20141218
  7. AMLODIPINE [Suspect]
     Active Substance: AMLODIPINE BESYLATE
  8. LOSARTAN. [Suspect]
     Active Substance: LOSARTAN
  9. OLMESARTAN [Suspect]
     Active Substance: OLMESARTAN
  10. VITAMIN B12 [Concomitant]
     Active Substance: CYANOCOBALAMIN

REACTIONS (7)
  - Pain in jaw [None]
  - Gingival bleeding [None]
  - Headache [None]
  - Rhinorrhoea [None]
  - Toothache [None]
  - Sinus disorder [None]
  - Constipation [None]
